FAERS Safety Report 23479840 (Version 3)
Quarter: 2025Q1

REPORT INFORMATION
  Report Type: Spontaneous
  Country: US (occurrence: US)
  Receive Date: 20240205
  Receipt Date: 20250226
  Transmission Date: 20250409
  Serious: No
  Sender: UCB
  Company Number: US-UCBSA-2023033848

PATIENT
  Age: 17 Month
  Sex: Female

DRUGS (8)
  1. LEVETIRACETAM [Suspect]
     Active Substance: LEVETIRACETAM
     Indication: Myoclonus
     Route: 042
  2. LEVETIRACETAM [Suspect]
     Active Substance: LEVETIRACETAM
     Indication: Ventricular tachycardia
     Dosage: 30 MILLIGRAM/KILOGRAM, 2X/DAY (BID) MAINTENANCE DOSING
     Route: 042
  3. LEVETIRACETAM [Suspect]
     Active Substance: LEVETIRACETAM
     Indication: Off label use
     Dosage: 50 MILLIGRAM/KILOGRAM, 2X/DAY (BID)
     Route: 042
  4. MIDAZOLAM [Suspect]
     Active Substance: MIDAZOLAM
     Indication: Myoclonus
  5. KETAMINE [Suspect]
     Active Substance: KETAMINE
     Indication: Myoclonus
  6. MORPHINE [Suspect]
     Active Substance: MORPHINE
     Indication: Myoclonus
  7. DEXMEDETOMIDINE [Suspect]
     Active Substance: DEXMEDETOMIDINE
     Indication: Myoclonus
  8. CISATRACURIUM [Suspect]
     Active Substance: CISATRACURIUM
     Indication: Myoclonus

REACTIONS (3)
  - Therapeutic response unexpected [Unknown]
  - Multiple-drug resistance [Unknown]
  - Off label use [Unknown]
